FAERS Safety Report 8308087-0 (Version None)
Quarter: 2012Q1

REPORT INFORMATION
  Report Type: 
  Country: None (occurrence: None)
  Receive Date: 20120327
  Receipt Date: 20091015
  Transmission Date: 20120608
  Serious: Yes (Other)
  Sender: FDA-Public Use
  Company Number: PHEH2009US14298

PATIENT
  Age: 60 Year
  Sex: Female
  Weight: 61.7 kg

DRUGS (9)
  1. ASCORBIC ACID [Concomitant]
  2. CHLOROTHIAZIDE [Concomitant]
  3. ATENOLOL [Concomitant]
  4. GLEEVEC [Suspect]
     Indication: CHRONIC MYELOID LEUKAEMIA
     Dosage: 400 MG, DAILY, ORAL : 300 MG, QD, ORAL
     Route: 048
     Dates: start: 20090101, end: 20090801
  5. GLEEVEC [Suspect]
     Indication: CHRONIC MYELOID LEUKAEMIA
     Dosage: 400 MG, DAILY, ORAL : 300 MG, QD, ORAL
     Route: 048
     Dates: start: 20090801
  6. GLUCOSAMINE W/ CHONDROITIN (CHONDROITIN SULFATE, GLUCOSAMINE) [Concomitant]
  7. SIMVASTATIN [Concomitant]
  8. IBUPROFEN [Concomitant]
  9. VITAMINS (NO INGREDIENTS/SUBSTANCES) [Concomitant]

REACTIONS (4)
  - ALANINE AMINOTRANSFERASE INCREASED [None]
  - HEPATIC ENZYME INCREASED [None]
  - ASPARTATE AMINOTRANSFERASE INCREASED [None]
  - PROTEIN TOTAL DECREASED [None]
